FAERS Safety Report 15244082 (Version 2)
Quarter: 2018Q4

REPORT INFORMATION
  Report Type: Spontaneous
  Country: US (occurrence: US)
  Receive Date: 20180806
  Receipt Date: 20181218
  Transmission Date: 20190204
  Serious: Yes (Hospitalization, Other)
  Sender: FDA-Public Use
  Company Number: US-IMPAX LABORATORIES, INC-2018-IPXL-02551

PATIENT
  Age: 63 Year
  Sex: Male

DRUGS (1)
  1. RYTARY [Suspect]
     Active Substance: CARBIDOPA\LEVODOPA
     Indication: PARKINSON^S DISEASE
     Dosage: 3 DOSAGE FORM, TID
     Route: 048

REACTIONS (8)
  - Skin laceration [Unknown]
  - Fall [Unknown]
  - Dyskinesia [Unknown]
  - Hypokinesia [Unknown]
  - Blood pressure abnormal [Unknown]
  - Dizziness [Unknown]
  - Speech disorder [Unknown]
  - Balance disorder [Unknown]

NARRATIVE: CASE EVENT DATE: 20180125
